FAERS Safety Report 22233400 (Version 1)
Quarter: 2023Q2

REPORT INFORMATION
  Report Type: Spontaneous
  Country: US (occurrence: None)
  Receive Date: 20230420
  Receipt Date: 20230420
  Transmission Date: 20230722
  Serious: No
  Sender: FDA-Public Use
  Company Number: US-ROCHE-3090503

PATIENT
  Sex: Male

DRUGS (8)
  1. ESBRIET [Suspect]
     Active Substance: PIRFENIDONE
     Indication: Pulmonary fibrosis
     Dosage: TAKE 1 CAPSULE 3 TIMES DAILY X1 WEEK, THEN 2 CAPS 3 TIMES DAILY X1 WEEK, THEN 3 CAPS TIMES DAILY WIT
     Route: 048
     Dates: start: 20220427
  2. ASPIRIN [Concomitant]
     Active Substance: ASPIRIN
  3. FINASTERIDE [Concomitant]
     Active Substance: FINASTERIDE
  4. METOPROLOL TARTRATE [Concomitant]
     Active Substance: METOPROLOL TARTRATE
  5. RAMIPRIL [Concomitant]
     Active Substance: RAMIPRIL
  6. SIMVASTATIN [Concomitant]
     Active Substance: SIMVASTATIN
  7. TAMSULOSIN HYDROCHLORIDE [Concomitant]
     Active Substance: TAMSULOSIN HYDROCHLORIDE
  8. ZYRTEC [Concomitant]
     Active Substance: CETIRIZINE HYDROCHLORIDE

REACTIONS (2)
  - Eructation [Not Recovered/Not Resolved]
  - Sensory loss [Not Recovered/Not Resolved]
